FAERS Safety Report 25775715 (Version 3)
Quarter: 2025Q4

REPORT INFORMATION
  Report Type: Spontaneous
  Country: EU (occurrence: EU)
  Receive Date: 20250909
  Receipt Date: 20251002
  Transmission Date: 20260118
  Serious: Yes (Hospitalization, Other)
  Sender: TEVA
  Company Number: EU-TEVA-VS-3370035

PATIENT
  Age: 36 Year
  Sex: Male

DRUGS (2)
  1. ARSENIC TRIOXIDE [Suspect]
     Active Substance: ARSENIC TRIOXIDE
     Indication: Differentiation syndrome
     Route: 065
  2. TRETINOIN [Suspect]
     Active Substance: TRETINOIN
     Indication: Differentiation syndrome
     Route: 065

REACTIONS (4)
  - Neurotoxicity [Recovering/Resolving]
  - Guillain-Barre syndrome [Recovering/Resolving]
  - Fall [Unknown]
  - Neuropathy peripheral [Unknown]
